FAERS Safety Report 5085303-2 (Version None)
Quarter: 2006Q3

REPORT INFORMATION
  Report Type: 
  Country: None (occurrence: None)
  Receive Date: 20060731
  Receipt Date: 20051206
  Transmission Date: 20061208
  Serious: Yes (Other)
  Sender: FDA-Public Use
  Company Number: 200512097BWH

PATIENT
  Age: 46 Year
  Sex: Female

DRUGS (4)
  1. AVELOX [Suspect]
     Indication: LUNG INFECTION
     Dosage: 400 MG, QD, ORAL
     Route: 048
     Dates: start: 20050912, end: 20050920
  2. FOSAMAX [Concomitant]
  3. ZYRTEC [Concomitant]
  4. ZITHROMAX (5-DAY PACK) [Concomitant]

REACTIONS (7)
  - ASTHENIA [None]
  - CONTUSION [None]
  - HYPERSENSITIVITY [None]
  - JOINT RANGE OF MOTION DECREASED [None]
  - PAIN [None]
  - TENDON DISORDER [None]
  - TENDONITIS [None]
